FAERS Safety Report 24658132 (Version 3)
Quarter: 2025Q1

REPORT INFORMATION
  Report Type: Spontaneous
  Country: SE (occurrence: SE)
  Receive Date: 20241125
  Receipt Date: 20250106
  Transmission Date: 20250408
  Serious: Yes (Hospitalization)
  Sender: TAKEDA
  Company Number: SE-TAKEDA-2024TUS117377

PATIENT
  Age: 84 Year
  Sex: Female

DRUGS (4)
  1. PRUCALOPRIDE SUCCINATE [Suspect]
     Active Substance: PRUCALOPRIDE SUCCINATE
     Indication: Constipation
     Dosage: 1 MILLIGRAM, QD
  2. PRUCALOPRIDE SUCCINATE [Suspect]
     Active Substance: PRUCALOPRIDE SUCCINATE
     Indication: Congenital megacolon
     Dosage: 2 MILLIGRAM, QD
     Dates: start: 2024
  3. PRUCALOPRIDE SUCCINATE [Suspect]
     Active Substance: PRUCALOPRIDE SUCCINATE
     Dosage: 1 MILLIGRAM, QOD
     Dates: start: 2024, end: 20241011
  4. PRUCALOPRIDE SUCCINATE [Suspect]
     Active Substance: PRUCALOPRIDE SUCCINATE
     Dosage: 2 MILLIGRAM, QOD
     Dates: start: 2024, end: 20241011

REACTIONS (3)
  - Drug hypersensitivity [Recovered/Resolved]
  - Food allergy [Recovered/Resolved]
  - Dermatitis contact [Recovered/Resolved]
